FAERS Safety Report 6775661-2 (Version None)
Quarter: 2010Q2

REPORT INFORMATION
  Report Type: 
  Country: None (occurrence: None)
  Receive Date: 20100617
  Receipt Date: 20100610
  Transmission Date: 20101027
  Serious: Yes (Other)
  Sender: FDA-Public Use
  Company Number: US-GENENTECH-302901

PATIENT
  Age: 51 Year
  Sex: Male

DRUGS (1)
  1. RITUXAN [Suspect]
     Indication: THROMBOCYTOPENIA
     Dosage: UNK
     Route: 042
     Dates: start: 20100501

REACTIONS (3)
  - DIABETES MELLITUS [None]
  - INJECTION SITE DISCOLOURATION [None]
  - RASH [None]
